FAERS Safety Report 6787900-2 (Version None)
Quarter: 2010Q2

REPORT INFORMATION
  Report Type: 
  Country: None (occurrence: None)
  Receive Date: 20100623
  Receipt Date: 20071102
  Transmission Date: 20101027
  Serious: No
  Sender: FDA-Public Use
  Company Number: US-PFIZER INC-2007087005

PATIENT
  Sex: Female
  Weight: 66.7 kg

DRUGS (5)
  1. SUTENT [Suspect]
     Indication: BREAST CANCER STAGE I
     Route: 048
     Dates: start: 20071009
  2. SUTENT [Suspect]
     Indication: BREAST CANCER
     Dates: start: 20071010
  3. TAMOXIFEN [Concomitant]
  4. SODIUM PHENYLBUTYRATE [Concomitant]
  5. LAPATINIB [Concomitant]

REACTIONS (6)
  - DIARRHOEA [None]
  - DYSGEUSIA [None]
  - DYSPEPSIA [None]
  - GINGIVAL BLEEDING [None]
  - MUSCLE SPASMS [None]
  - RASH [None]
